FAERS Safety Report 9170194 (Version 1)
Quarter: 2013Q1

REPORT INFORMATION
  Report Type: Spontaneous
  Country: BR (occurrence: BR)
  Receive Date: 20130319
  Receipt Date: 20130319
  Transmission Date: 20140127
  Serious: Yes (Other)
  Sender: FDA-Public Use
  Company Number: PHHY2013BR025930

PATIENT
  Age: 38 Year
  Sex: Male

DRUGS (1)
  1. TEGRETOL CR [Suspect]
     Indication: CONVULSION
     Dosage: 2 DF, DAILY
     Route: 048

REACTIONS (2)
  - Spinal cord neoplasm [Recovering/Resolving]
  - Testicular neoplasm [Recovering/Resolving]
